FAERS Safety Report 8983864 (Version 2)
Quarter: 2013Q1

REPORT INFORMATION
  Report Type: Spontaneous
  Country: SE (occurrence: SE)
  Receive Date: 20121224
  Receipt Date: 20130114
  Transmission Date: 20140127
  Serious: Yes (Other)
  Sender: FDA-Public Use
  Company Number: SE-ROCHE-1172547

PATIENT
  Sex: Male

DRUGS (2)
  1. XOLAIR [Suspect]
     Indication: PRODUCT USED FOR UNKNOWN INDICATION
     Dosage: DATE OF LAST DOSE : 02/JAN/2013
     Route: 065
     Dates: start: 201209
  2. SYMBICORT [Concomitant]

REACTIONS (2)
  - Haemoptysis [Recovered/Resolved]
  - Productive cough [Recovered/Resolved]
